FAERS Safety Report 17836437 (Version 3)
Quarter: 2020Q3

REPORT INFORMATION
  Report Type: Report from Study
  Country: JP (occurrence: JP)
  Receive Date: 20200529
  Receipt Date: 20200803
  Transmission Date: 20201103
  Serious: Yes (Hospitalization)
  Sender: FDA-Public Use
  Company Number: JP-ROCHE-2589948

PATIENT
  Age: 73 Year
  Sex: Female
  Weight: 48 kg

DRUGS (14)
  1. BILASTINE [Concomitant]
     Active Substance: BILASTINE
     Indication: DERMATITIS EXFOLIATIVE GENERALISED
     Route: 048
     Dates: start: 20200306
  2. BEVACIZUMAB. [Suspect]
     Active Substance: BEVACIZUMAB
     Indication: LUNG CARCINOMA CELL TYPE UNSPECIFIED STAGE IV
     Route: 041
     Dates: start: 20191226
  3. ALIMTA [Suspect]
     Active Substance: PEMETREXED DISODIUM
     Indication: LUNG CARCINOMA CELL TYPE UNSPECIFIED STAGE IV
     Route: 041
     Dates: start: 20191226, end: 20200306
  4. CARBOPLATIN. [Suspect]
     Active Substance: CARBOPLATIN
     Indication: LUNG CARCINOMA CELL TYPE UNSPECIFIED STAGE IV
     Dosage: AUC5
     Route: 041
     Dates: start: 20191226
  5. NEXIUM [Concomitant]
     Active Substance: ESOMEPRAZOLE MAGNESIUM
     Indication: GASTRITIS PROPHYLAXIS
     Route: 048
     Dates: start: 20200410
  6. CLOBETASOL PROPIONATE. [Concomitant]
     Active Substance: CLOBETASOL PROPIONATE
     Indication: DERMATITIS EXFOLIATIVE GENERALISED
     Dosage: PROPER SPREADING
     Route: 061
     Dates: start: 20200403
  7. ATEZOLIZUMAB. [Suspect]
     Active Substance: ATEZOLIZUMAB
     Route: 041
     Dates: start: 20200201, end: 20200306
  8. PREDNISOLONE. [Concomitant]
     Active Substance: PREDNISOLONE
     Indication: DERMATITIS EXFOLIATIVE GENERALISED
     Route: 048
     Dates: start: 20200403
  9. SULFAMETHOXAZOLE [Concomitant]
     Active Substance: SULFAMETHOXAZOLE
     Indication: INFECTION PROPHYLAXIS
     Dosage: DOSE INTERVAL UNCERTAINTY
     Route: 048
     Dates: start: 20200403
  10. CROTAMITON [Concomitant]
     Active Substance: CROTAMITON
     Indication: DERMATITIS EXFOLIATIVE GENERALISED
     Dosage: PROPER SPREADING
     Route: 061
     Dates: start: 20200115
  11. FRESMIN S [Concomitant]
     Active Substance: HYDROXOCOBALAMIN
     Indication: PREMEDICATION
     Route: 030
     Dates: start: 20191219
  12. ATEZOLIZUMAB. [Suspect]
     Active Substance: ATEZOLIZUMAB
     Indication: LUNG CARCINOMA CELL TYPE UNSPECIFIED STAGE IV
     Dosage: 06/MAR/2020: DOSE RECEIVED
     Route: 041
     Dates: start: 20191226, end: 20200117
  13. BETAMETHASONE BUTYRATE PROPIONATE [Concomitant]
     Active Substance: BETAMETHASONE BUTYRATE PROPIONATE
     Indication: DERMATITIS EXFOLIATIVE GENERALISED
     Dosage: PROPER SPREADING
     Route: 061
     Dates: start: 20200115
  14. HEPARINOID [Concomitant]
     Active Substance: CHONDROITIN SULFATE (BOVINE)
     Indication: DERMATITIS EXFOLIATIVE GENERALISED
     Dosage: PROPER SPREADING
     Route: 061
     Dates: start: 20200115

REACTIONS (5)
  - Cholangitis [Not Recovered/Not Resolved]
  - Lower gastrointestinal haemorrhage [Recovering/Resolving]
  - Disseminated intravascular coagulation [Recovered/Resolved]
  - Colitis [Recovered/Resolved]
  - Meningoencephalitis herpetic [Not Recovered/Not Resolved]

NARRATIVE: CASE EVENT DATE: 20200416
